FAERS Safety Report 12721160 (Version 1)
Quarter: 2016Q3

REPORT INFORMATION
  Report Type: Spontaneous
  Country: IE (occurrence: IE)
  Receive Date: 20160907
  Receipt Date: 20160907
  Transmission Date: 20161109
  Serious: Yes (Other)
  Sender: FDA-Public Use
  Company Number: PHFR2016IE007170

PATIENT
  Age: 64 Year
  Sex: Male

DRUGS (9)
  1. PULMICORT TURBUHALER [Concomitant]
     Active Substance: BUDESONIDE
     Indication: RESPIRATORY DISORDER
     Dosage: 400 UG, QD
     Route: 065
     Dates: start: 20151209
  2. CALCIUM +D3 [Concomitant]
     Active Substance: CALCIUM\CHOLECALCIFEROL
     Indication: VITAMIN D DEFICIENCY
     Dosage: 1000MG/800IU QD
     Route: 048
  3. SERETIDE [Concomitant]
     Active Substance: FLUTICASONE PROPIONATE\SALMETEROL XINAFOATE
     Indication: RESPIRATORY DISORDER
     Dosage: 500 UG, BID
     Route: 055
     Dates: start: 20120209
  4. ULTIBRO BREEZHALER [Suspect]
     Active Substance: GLYCOPYRRONIUM\INDACATEROL
     Indication: RESPIRATORY DISORDER
     Dosage: 1 DF, UNK
     Route: 055
  5. FUROSEMIDE. [Concomitant]
     Active Substance: FUROSEMIDE
     Indication: POLYURIA
     Dosage: 40 MG, QD
     Route: 048
  6. SALAMOL EASY BREATH [Concomitant]
     Indication: RESPIRATORY DISORDER
     Dosage: 100 UG, TDS
     Route: 055
     Dates: start: 20160801
  7. COZAAR [Concomitant]
     Active Substance: LOSARTAN POTASSIUM
     Indication: HYPERTENSION
     Dosage: 50 MG, QD
     Route: 048
     Dates: start: 20120225
  8. LIPITOR [Concomitant]
     Active Substance: ATORVASTATIN CALCIUM
     Indication: HYPERLIPIDAEMIA
     Dosage: 10 MG, QD
     Route: 048
  9. ASPIRIN. [Concomitant]
     Active Substance: ASPIRIN
     Indication: CARDIAC DISORDER
     Dosage: 75 MG, QD
     Route: 048

REACTIONS (2)
  - Back pain [Unknown]
  - Product use issue [Unknown]

NARRATIVE: CASE EVENT DATE: 20160624
